FAERS Safety Report 11780590 (Version 1)
Quarter: 2015Q4

REPORT INFORMATION
  Report Type: Report from Study
  Country: CA (occurrence: CA)
  Receive Date: 20151126
  Receipt Date: 20151126
  Transmission Date: 20160305
  Serious: Yes (Disabling)
  Sender: FDA-Public Use
  Company Number: CA-AMGEN-CANSL2015124646

PATIENT
  Age: 59 Year
  Sex: Female
  Weight: 70.3 kg

DRUGS (1)
  1. PROLIA [Suspect]
     Active Substance: DENOSUMAB
     Indication: OSTEOPOROSIS
     Dosage: 60 MG/ML, UNK
     Route: 058

REACTIONS (1)
  - Retinal tear [Recovered/Resolved]

NARRATIVE: CASE EVENT DATE: 20151024
